FAERS Safety Report 8152394-1 (Version None)
Quarter: 2012Q1

REPORT INFORMATION
  Report Type: 
  Country: None (occurrence: None)
  Receive Date: 20120221
  Receipt Date: 20120215
  Transmission Date: 20120608
  Serious: Yes (Life-Threatening, Hospitalization)
  Sender: FDA-Public Use
  Company Number: US-BAYER-2011-057067

PATIENT
  Age: 27 Year
  Sex: Female

DRUGS (9)
  1. SYMBICORT [Concomitant]
     Dosage: 2 PUFF(S), BID
  2. PERCOCET [Concomitant]
  3. ELMIRON [Concomitant]
  4. DROSPIRENONE AND ETHINYL ESTRADIOL [Suspect]
  5. DITROPAN [Concomitant]
  6. YAZ [Suspect]
  7. YASMIN [Suspect]
  8. PROVENTIL [Concomitant]
     Dosage: 2 PUFF(S), PRN
     Route: 055
  9. SINGULAIR [Concomitant]
     Dosage: 10 MG, UNK
     Route: 048

REACTIONS (8)
  - EMOTIONAL DISTRESS [None]
  - ANXIETY [None]
  - DEEP VEIN THROMBOSIS [None]
  - PAIN [None]
  - ANHEDONIA [None]
  - INJURY [None]
  - THROMBOSIS [None]
  - GENERAL PHYSICAL HEALTH DETERIORATION [None]
